FAERS Safety Report 18679852 (Version 1)
Quarter: 2020Q4

REPORT INFORMATION
  Report Type: Spontaneous
  Country: CL (occurrence: CL)
  Receive Date: 20201230
  Receipt Date: 20201230
  Transmission Date: 20210114
  Serious: Yes (Life-Threatening, Hospitalization, Other)
  Sender: FDA-Public Use
  Company Number: US-BRISTOL-MYERS SQUIBB COMPANY-BMS-2019-047362

PATIENT
  Age: 25 Year
  Sex: Female
  Weight: 51 kg

DRUGS (4)
  1. GEMCITABINE. [Suspect]
     Active Substance: GEMCITABINE
     Indication: HODGKIN^S DISEASE
     Dosage: UNK
     Route: 065
  2. OPDIVO [Suspect]
     Active Substance: NIVOLUMAB
     Indication: HODGKIN^S DISEASE
     Dosage: 100 MILLIGRAM, EVERY 15 DAYS
     Route: 042
     Dates: start: 2016
  3. OPDIVO [Suspect]
     Active Substance: NIVOLUMAB
     Dosage: 1 NIVOLUMAB CYCLE
     Route: 042
     Dates: start: 20200129
  4. OPDIVO [Suspect]
     Active Substance: NIVOLUMAB
     Dosage: 6 CYCLES WITH NIVOLUMAB
     Route: 042
     Dates: start: 201703

REACTIONS (9)
  - Gallbladder disorder [Unknown]
  - Superior vena cava syndrome [Unknown]
  - Abdominal pain [Unknown]
  - Prescribed underdose [Unknown]
  - Malignant neoplasm progression [Unknown]
  - Metastases to spleen [Unknown]
  - Hepatosplenomegaly [Unknown]
  - Off label use [Unknown]
  - Pleural effusion [Unknown]

NARRATIVE: CASE EVENT DATE: 20190525
